FAERS Safety Report 9266213 (Version 2)
Quarter: 2013Q2

REPORT INFORMATION
  Report Type: Spontaneous
  Country: US (occurrence: US)
  Receive Date: 20130502
  Receipt Date: 20130628
  Transmission Date: 20140414
  Serious: No
  Sender: FDA-Public Use
  Company Number: US-009507513-1305USA000577

PATIENT
  Sex: Female
  Weight: 90.7 kg

DRUGS (2)
  1. IMPLANON [Suspect]
     Dosage: UNK
     Route: 059
     Dates: start: 20130426, end: 20130426
  2. IMPLANON [Suspect]
     Dosage: UNK
     Route: 059
     Dates: start: 20130426

REACTIONS (3)
  - Device difficult to use [Unknown]
  - No adverse event [Unknown]
  - Device breakage [Unknown]
